FAERS Safety Report 4395908-X (Version None)
Quarter: 2004Q3

REPORT INFORMATION
  Report Type: 
  Country: None (occurrence: None)
  Receive Date: 20040709
  Receipt Date: 20040628
  Transmission Date: 20050211
  Serious: Yes (Death, Hospitalization)
  Sender: FDA-Public Use
  Company Number: 2003176362US

PATIENT
  Age: 47 Year
  Sex: Female

DRUGS (12)
  1. FLAGYL [Suspect]
     Dosage: 500 MG, IV
     Route: 042
     Dates: start: 20001104, end: 20001101
  2. MAXIPIME [Suspect]
     Dosage: 1 G, IV
     Route: 042
     Dates: start: 20001106, end: 20001101
  3. INSULIN [Concomitant]
  4. MIACALCIN [Concomitant]
  5. DELTASONE [Concomitant]
  6. NEPHRO-VITE RX [Concomitant]
  7. EPOGEN [Concomitant]
  8. AVANDIA [Concomitant]
  9. PROTONIX [Concomitant]
  10. NYSTATIN [Concomitant]
  11. DIGOXIN [Concomitant]
  12. PEPCID [Concomitant]

REACTIONS (14)
  - BLOOD ALKALINE PHOSPHATASE INCREASED [None]
  - BLOOD BILIRUBIN INCREASED [None]
  - BLOOD LACTATE DEHYDROGENASE INCREASED [None]
  - CONDITION AGGRAVATED [None]
  - DEPRESSED LEVEL OF CONSCIOUSNESS [None]
  - ENTEROCOCCAL INFECTION [None]
  - GASTROINTESTINAL HAEMORRHAGE [None]
  - HEPATIC ENZYME INCREASED [None]
  - HYPOTENSION [None]
  - INFLAMMATION [None]
  - METABOLIC ENCEPHALOPATHY [None]
  - SEPSIS [None]
  - THROMBOCYTOPENIA [None]
  - TOXIC EPIDERMAL NECROLYSIS [None]
